FAERS Safety Report 25064479 (Version 1)
Quarter: 2025Q1

REPORT INFORMATION
  Report Type: Spontaneous
  Country: US (occurrence: US)
  Receive Date: 20250311
  Receipt Date: 20250311
  Transmission Date: 20250409
  Serious: Yes (Other)
  Sender: PFIZER
  Company Number: US-PFIZER INC-202500051608

PATIENT
  Age: 84 Year
  Sex: Male

DRUGS (1)
  1. INLYTA [Suspect]
     Active Substance: AXITINIB
     Dosage: 2 MG, 2X/DAY ((1 MG TABLET TAKE 2 TABLETS (2MG) TWO TIMES DAILY))
     Route: 048
     Dates: start: 20230720

REACTIONS (1)
  - Groin infection [Not Recovered/Not Resolved]
